FAERS Safety Report 23261865 (Version 1)
Quarter: 2023Q4

REPORT INFORMATION
  Report Type: Spontaneous
  Country: US (occurrence: US)
  Receive Date: 20231205
  Receipt Date: 20231205
  Transmission Date: 20240110
  Serious: Yes (Hospitalization)
  Sender: FDA-Public Use
  Company Number: US-MYLANLABS-2023M1127560

PATIENT
  Age: 14 Year
  Sex: Male

DRUGS (2)
  1. ANASTROZOLE [Suspect]
     Active Substance: ANASTROZOLE
     Indication: Gynaecomastia
     Dosage: UNK
     Route: 065
  2. TAMOXIFEN [Suspect]
     Active Substance: TAMOXIFEN
     Indication: Gynaecomastia
     Dosage: 20 MILLIGRAM, QD
     Route: 065

REACTIONS (3)
  - Disorder of sex development [Recovered/Resolved]
  - Haemorrhagic cyst [Recovered/Resolved]
  - Drug ineffective [Unknown]
